FAERS Safety Report 25296628 (Version 1)
Quarter: 2025Q2

REPORT INFORMATION
  Report Type: Spontaneous
  Country: US (occurrence: US)
  Receive Date: 20250511
  Receipt Date: 20250511
  Transmission Date: 20250717
  Serious: No
  Sender: SANOFI AVENTIS
  Company Number: US-SA-2025SA134083

PATIENT
  Age: 67 Year
  Sex: Male
  Weight: 100.91 kg

DRUGS (15)
  1. DUPIXENT [Suspect]
     Active Substance: DUPILUMAB
     Indication: Asthma
     Dosage: 300 MG, QOW
     Route: 058
     Dates: start: 2021
  2. DUPIXENT [Suspect]
     Active Substance: DUPILUMAB
     Indication: Type 2 diabetes mellitus
  3. DUPIXENT [Suspect]
     Active Substance: DUPILUMAB
     Indication: Essential hypertension
  4. DUPIXENT [Suspect]
     Active Substance: DUPILUMAB
     Indication: Anxiety disorder
  5. DUPIXENT [Suspect]
     Active Substance: DUPILUMAB
     Indication: Arthritis
  6. DUPIXENT [Suspect]
     Active Substance: DUPILUMAB
     Indication: Cardiac disorder
  7. DUPIXENT [Suspect]
     Active Substance: DUPILUMAB
     Indication: Depression
  8. DUPIXENT [Suspect]
     Active Substance: DUPILUMAB
     Indication: Sleep apnoea syndrome
  9. DUPIXENT [Suspect]
     Active Substance: DUPILUMAB
     Indication: Fibromyalgia
  10. EPLERENONE [Concomitant]
     Active Substance: EPLERENONE
  11. DOXEPIN HYDROCHLORIDE [Concomitant]
     Active Substance: DOXEPIN HYDROCHLORIDE
  12. COREG [Concomitant]
     Active Substance: CARVEDILOL
  13. FLONASE ALLERGY RELIEF [Concomitant]
     Active Substance: FLUTICASONE PROPIONATE
  14. ALBUTEROL SULFATE [Concomitant]
     Active Substance: ALBUTEROL SULFATE
  15. ALBUTEROL SULFATE [Concomitant]
     Active Substance: ALBUTEROL SULFATE

REACTIONS (5)
  - Pain [Unknown]
  - Hot flush [Unknown]
  - Tremor [Unknown]
  - Nasopharyngitis [Unknown]
  - Product use in unapproved indication [Unknown]

NARRATIVE: CASE EVENT DATE: 20210101
